FAERS Safety Report 6870874-3 (Version None)
Quarter: 2010Q3

REPORT INFORMATION
  Report Type: 
  Country: None (occurrence: None)
  Receive Date: 20100723
  Receipt Date: 20100709
  Transmission Date: 20110219
  Serious: Yes (Congenital Anomaly, Other)
  Sender: FDA-Public Use
  Company Number: PHHY2010NL46129

PATIENT
  Sex: Male

DRUGS (3)
  1. CARBAMAZEPINE [Suspect]
     Route: 064
  2. PHENYTOIN [Suspect]
     Dosage: UNK
     Route: 064
  3. PHENOBARBITAL [Suspect]
     Route: 064

REACTIONS (10)
  - ANOMALY OF EXTERNAL EAR CONGENITAL [None]
  - ANTISOCIAL BEHAVIOUR [None]
  - DISINHIBITION [None]
  - DRUG EXPOSURE DURING PREGNANCY [None]
  - DYSMORPHISM [None]
  - EXECUTIVE DYSFUNCTION [None]
  - FINGER HYPOPLASIA [None]
  - FOETAL ANTICONVULSANT SYNDROME [None]
  - MENTAL DISABILITY [None]
  - NOSE DEFORMITY [None]
